FAERS Safety Report 5649440-3 (Version None)
Quarter: 2008Q1

REPORT INFORMATION
  Report Type: 
  Country: None (occurrence: None)
  Receive Date: 20080304
  Receipt Date: 20080220
  Transmission Date: 20080703
  Serious: Yes (Other)
  Sender: FDA-Public Use
  Company Number: FR-BAYER-200710008BFR

PATIENT
  Age: 49 Year
  Sex: Female

DRUGS (6)
  1. SORAFENIB [Suspect]
     Indication: NON-SMALL CELL LUNG CANCER
     Dosage: TOTAL DAILY DOSE: 800 MG  UNIT DOSE: 200 MG
     Route: 048
     Dates: start: 20061221, end: 20070101
  2. SORAFENIB [Suspect]
  3. PACLITAXEL [Suspect]
     Indication: NON-SMALL CELL LUNG CANCER
     Route: 042
     Dates: start: 20061220, end: 20061220
  4. PACLITAXEL [Suspect]
  5. CARBOPLATIN [Suspect]
     Indication: NON-SMALL CELL LUNG CANCER
     Route: 042
     Dates: start: 20061220, end: 20061220
  6. CARBOPLATIN [Suspect]

REACTIONS (1)
  - DERMATITIS EXFOLIATIVE [None]
